FAERS Safety Report 12924768 (Version 1)
Quarter: 2016Q4

REPORT INFORMATION
  Report Type: Spontaneous
  Country: JP (occurrence: JP)
  Receive Date: 20161109
  Receipt Date: 20161109
  Transmission Date: 20170207
  Serious: Yes (Hospitalization)
  Sender: FDA-Public Use
  Company Number: JP-ACTELION-A-CH2016-143493

PATIENT
  Age: 78 Year
  Sex: Female

DRUGS (2)
  1. IMURAN [Concomitant]
     Active Substance: AZATHIOPRINE
  2. OPSUMIT [Suspect]
     Active Substance: MACITENTAN
     Indication: PULMONARY HYPERTENSION
     Dosage: 10 MG, OD
     Route: 048
     Dates: start: 20160927, end: 20160930

REACTIONS (5)
  - Anaemia [Recovered/Resolved]
  - Malaise [Not Recovered/Not Resolved]
  - Haemoglobin decreased [Recovered/Resolved]
  - Transfusion [Unknown]
  - Blood sodium decreased [Not Recovered/Not Resolved]

NARRATIVE: CASE EVENT DATE: 20160927
